FAERS Safety Report 19145494 (Version 1)
Quarter: 2021Q2

REPORT INFORMATION
  Report Type: Spontaneous
  Country: JP (occurrence: JP)
  Receive Date: 20210416
  Receipt Date: 20210416
  Transmission Date: 20210717
  Serious: Yes (Other)
  Sender: FDA-Public Use
  Company Number: JP-PFIZER INC-2021361935

PATIENT
  Age: 74 Year
  Sex: Male
  Weight: 60 kg

DRUGS (15)
  1. VFEND [Suspect]
     Active Substance: VORICONAZOLE
     Indication: SYSTEMIC MYCOSIS
     Dosage: 350 MG, 2X/DAY
     Route: 041
     Dates: start: 20210105, end: 20210106
  2. POLAPREZINC [Concomitant]
     Active Substance: POLAPREZINC
     Dosage: UNK
  3. VFEND [Suspect]
     Active Substance: VORICONAZOLE
     Indication: SYSTEMIC MYCOSIS
     Dosage: 150 MG, 2X/DAY
     Route: 048
     Dates: start: 20210113, end: 20210131
  4. FLAVITAN [Concomitant]
     Active Substance: FLAVIN ADENINE DINUCLEOTIDE
     Dosage: UNK
  5. URSO [Concomitant]
     Active Substance: URSODIOL
     Dosage: 100 MG, 3X/DAY AFTER EACH MEAL
  6. ADETPHOS [Concomitant]
     Active Substance: ADENOSINE TRIPHOSPHATE
     Dosage: UNK
  7. TARIVID [OFLOXACIN] [Concomitant]
     Active Substance: OFLOXACIN
     Dosage: UNK
  8. LOXOPROFEN NA [Concomitant]
     Active Substance: LOXOPROFEN SODIUM
     Dosage: UNK
  9. ROSUVASTATIN OD EE [Suspect]
     Active Substance: ROSUVASTATIN CALCIUM
     Dosage: 2.5 MG, 1X/DAY
     Route: 048
     Dates: end: 20210120
  10. MECOBALAMIN [Concomitant]
     Active Substance: METHYLCOBALAMIN
     Dosage: UNK
  11. MAGNESIUM OXIDE. [Concomitant]
     Active Substance: MAGNESIUM OXIDE
     Dosage: UNK
  12. EYEDROITIN [Concomitant]
     Dosage: UNK
  13. FEXOFENADINE HYDROCHLORIDE. [Concomitant]
     Active Substance: FEXOFENADINE HYDROCHLORIDE
     Dosage: UNK
  14. VFEND [Suspect]
     Active Substance: VORICONAZOLE
     Dosage: 180 MG, 2X/DAY
     Route: 041
     Dates: start: 20210106, end: 20210112
  15. VFEND [Suspect]
     Active Substance: VORICONAZOLE
     Dosage: 150 MG, 2X/DAY
     Route: 048
     Dates: start: 20210131

REACTIONS (1)
  - Hypercreatinaemia [Recovered/Resolved]

NARRATIVE: CASE EVENT DATE: 20210118
